FAERS Safety Report 7656986-5 (Version None)
Quarter: 2011Q3

REPORT INFORMATION
  Report Type: 
  Country: None (occurrence: None)
  Receive Date: 20110804
  Receipt Date: 20110720
  Transmission Date: 20111222
  Serious: Yes (Death, Hospitalization)
  Sender: FDA-Public Use
  Company Number: ES-JNJFOC-20110802104

PATIENT
  Age: 77 Year
  Sex: Male

DRUGS (2)
  1. REMICADE [Suspect]
     Indication: SPONDYLOARTHROPATHY
     Route: 042
     Dates: start: 20050418
  2. ACETAMINOPHEN [Concomitant]

REACTIONS (2)
  - DIVERTICULAR PERFORATION [None]
  - LUNG CANCER METASTATIC [None]
